FAERS Safety Report 15525488 (Version 1)
Quarter: 2018Q4

REPORT INFORMATION
  Report Type: Spontaneous
  Country: US (occurrence: US)
  Receive Date: 20181018
  Receipt Date: 20181018
  Transmission Date: 20190205
  Serious: Yes (Hospitalization)
  Sender: FDA-Public Use
  Company Number: US-TEVA-2018-US-963665

PATIENT
  Age: 38 Year
  Sex: Female

DRUGS (6)
  1. IRON [Concomitant]
     Active Substance: IRON
     Indication: SUPPLEMENTATION THERAPY
     Route: 065
  2. ENOXAPARIN [Suspect]
     Active Substance: ENOXAPARIN
     Indication: ANTICOAGULANT THERAPY
     Route: 065
  3. ASPIRIN. [Concomitant]
     Active Substance: ASPIRIN
     Indication: ANTICOAGULANT THERAPY
     Route: 065
  4. LEVOTHYROXINE. [Concomitant]
     Active Substance: LEVOTHYROXINE
     Route: 065
  5. RECOMBINANT FOLLICLE STIMULATING HORMONE [Suspect]
     Active Substance: FOLLITROPIN
     Indication: IN VITRO FERTILISATION
  6. RECOMBINANT FOLLICLE STIMULATING HORMONE [Suspect]
     Active Substance: FOLLITROPIN
     Indication: OVULATION INDUCTION
     Route: 065

REACTIONS (6)
  - Hemianopia homonymous [Unknown]
  - Embolism [Recovered/Resolved]
  - Skin disorder [Recovered/Resolved]
  - Transaminases increased [Recovered/Resolved]
  - Cerebrovascular accident [Unknown]
  - Hypercoagulation [Recovered/Resolved]
